FAERS Safety Report 6973154-0 (Version None)
Quarter: 2010Q3

REPORT INFORMATION
  Report Type: 
  Country: None (occurrence: None)
  Receive Date: 20100909
  Receipt Date: 20000317
  Transmission Date: 20110219
  Serious: Yes (Hospitalization)
  Sender: FDA-Public Use
  Company Number: US-ROCHE-225519

PATIENT
  Age: 57 Year
  Sex: Female
  Weight: 86.2 kg

DRUGS (2)
  1. XENICAL [Suspect]
     Indication: WEIGHT CONTROL
     Dosage: WITH MEALS.
     Route: 048
     Dates: start: 19991201, end: 20000309
  2. XENICAL [Suspect]
     Route: 048
     Dates: start: 20000313

REACTIONS (5)
  - ABNORMAL FAECES [None]
  - DRUG INEFFECTIVE [None]
  - GASTROINTESTINAL HAEMORRHAGE [None]
  - RECTAL HAEMORRHAGE [None]
  - STEATORRHOEA [None]
